FAERS Safety Report 25649356 (Version 1)
Quarter: 2025Q3

REPORT INFORMATION
  Report Type: Spontaneous
  Country: US (occurrence: None)
  Receive Date: 20250805
  Receipt Date: 20250805
  Transmission Date: 20251021
  Serious: Yes (Other)
  Sender: FDA-CTU
  Company Number: None

PATIENT
  Age: 30 Year
  Sex: Female

DRUGS (1)
  1. RINVOQ [Suspect]
     Active Substance: UPADACITINIB
     Indication: Axial spondyloarthritis
     Dosage: 15MG DAILY

REACTIONS (7)
  - Hypotension [None]
  - Vertigo [None]
  - Syncope [None]
  - Paraesthesia [None]
  - Erythema [None]
  - Nausea [None]
  - Vomiting [None]
